FAERS Safety Report 19175773 (Version 1)
Quarter: 2021Q2

REPORT INFORMATION
  Report Type: Not Available
  Country: US (occurrence: None)
  Receive Date: 20210423
  Receipt Date: 20210423
  Transmission Date: 20210717
  Serious: No
  Sender: FDA-Public Use
  Company Number: US-AKORN-164667

PATIENT
  Sex: Female

DRUGS (1)
  1. THERATEARS? STERILID EYELIDS CLEANSER [Suspect]
     Active Substance: TEA TREE OIL

REACTIONS (1)
  - Eye irritation [Unknown]
